FAERS Safety Report 17138387 (Version 1)
Quarter: 2019Q4

REPORT INFORMATION
  Report Type: Spontaneous
  Country: US (occurrence: US)
  Receive Date: 20191211
  Receipt Date: 20191211
  Transmission Date: 20200122
  Serious: Yes (Death, Other)
  Sender: FDA-Public Use
  Company Number: US-009507513-1912USA004597

PATIENT
  Age: 52 Year
  Sex: Female

DRUGS (10)
  1. ALPRAZOLAM. [Suspect]
     Active Substance: ALPRAZOLAM
     Dosage: ROUTE: INGESTION
  2. ESCITALOPRAM [Suspect]
     Active Substance: ESCITALOPRAM OXALATE
     Dosage: ROUTE: INGESTION
  3. ZOCOR [Suspect]
     Active Substance: SIMVASTATIN
     Dosage: ROUTE: INGESTION
  4. JANUVIA [Suspect]
     Active Substance: SITAGLIPTIN PHOSPHATE
     Dosage: ROUTE: INGESTION
  5. BUPROPION. [Suspect]
     Active Substance: BUPROPION
     Dosage: ROUTE: INGESTION
  6. GLIPIZIDE. [Suspect]
     Active Substance: GLIPIZIDE
     Dosage: ROUTE: INGESTION
  7. CANNABIS SATIVA [Suspect]
     Active Substance: CANNABIS SATIVA FLOWERING TOP
     Dosage: ROUTE: INGESTION
  8. ALPRAZOLAM. [Suspect]
     Active Substance: ALPRAZOLAM
     Dosage: ROUTE: INGESTION
  9. BUPROPION. [Suspect]
     Active Substance: BUPROPION
     Dosage: ROUTE: INGESTION
  10. CANNABIS SATIVA [Suspect]
     Active Substance: CANNABIS SATIVA FLOWERING TOP
     Dosage: ROUTE: INGESTION

REACTIONS (1)
  - Suspected suicide [Fatal]
